FAERS Safety Report 9082151 (Version 2)
Quarter: 2013Q1

REPORT INFORMATION
  Report Type: Spontaneous
  Country: IT (occurrence: IT)
  Receive Date: 20130131
  Receipt Date: 20130313
  Transmission Date: 20140127
  Serious: Yes (Life-Threatening)
  Sender: FDA-Public Use
  Company Number: IT-009507513-1301ITA013583

PATIENT
  Age: 60 Year
  Sex: Female

DRUGS (4)
  1. FOSAVANCE [Suspect]
     Indication: OSTEOPOROSIS
     Dosage: 70 MG+70 MCG, QW
     Route: 048
     Dates: start: 20081201, end: 20110101
  2. CALCIUM CARBONATE (+) CHOLECALCIFEROL [Concomitant]
  3. DINTOINA [Concomitant]
     Route: 048
  4. MODURETIC 5/50 MG COMPRESSE [Concomitant]
     Dosage: (2.5+25) MG
     Route: 048

REACTIONS (1)
  - Oesophageal carcinoma [Recovered/Resolved with Sequelae]
